FAERS Safety Report 25384609 (Version 1)
Quarter: 2025Q2

REPORT INFORMATION
  Report Type: Spontaneous
  Country: US (occurrence: US)
  Receive Date: 20250602
  Receipt Date: 20250602
  Transmission Date: 20250716
  Serious: No
  Sender: BAYER HEALTHCARE PHARMACEUTICALS INC.
  Company Number: US-BAYER-2025A072310

PATIENT
  Sex: Male

DRUGS (2)
  1. JIVI [Suspect]
     Active Substance: DAMOCTOCOG ALFA PEGOL
     Dosage: JIVI 3144 IU: INFUSE 5500 UNITS, 2XW AND AS NEEDED
  2. JIVI [Suspect]
     Active Substance: DAMOCTOCOG ALFA PEGOL

REACTIONS (1)
  - Product dose omission issue [None]
